FAERS Safety Report 11129528 (Version 2)
Quarter: 2015Q2

REPORT INFORMATION
  Report Type: Spontaneous
  Country: US (occurrence: US)
  Receive Date: 20150521
  Receipt Date: 20150603
  Transmission Date: 20150821
  Serious: No
  Sender: FDA-Public Use
  Company Number: US-GLAXOSMITHKLINE-US2015068455

PATIENT
  Age: 81 Year
  Sex: Female

DRUGS (5)
  1. CLOPIDOGREL [Concomitant]
     Active Substance: CLOPIDOGREL BISULFATE
  2. VITAMIN B12 [Concomitant]
     Active Substance: CYANOCOBALAMIN
  3. BREO ELLIPTA [Suspect]
     Active Substance: FLUTICASONE FUROATE\VILANTEROL TRIFENATATE
     Indication: PRODUCT USED FOR UNKNOWN INDICATION
     Dosage: UNK
     Route: 055
     Dates: start: 20150505, end: 20150508
  4. PANTOPRAZOLE [Concomitant]
     Active Substance: PANTOPRAZOLE SODIUM
  5. CLORAZEPATE [Concomitant]
     Active Substance: CLORAZEPATE DIPOTASSIUM

REACTIONS (4)
  - Aphonia [Recovered/Resolved]
  - Drug interaction [Unknown]
  - Urticaria [Not Recovered/Not Resolved]
  - Sinus headache [Unknown]

NARRATIVE: CASE EVENT DATE: 20150509
